FAERS Safety Report 8172461-6 (Version None)
Quarter: 2012Q1

REPORT INFORMATION
  Report Type: 
  Country: None (occurrence: None)
  Receive Date: 20120227
  Receipt Date: 20120227
  Transmission Date: 20120608
  Serious: Yes (Hospitalization)
  Sender: FDA-Public Use
  Company Number: None

PATIENT
  Sex: Female
  Weight: 49 kg

DRUGS (6)
  1. PREDNISONE TAB [Suspect]
     Dosage: 900 MG
  2. RITUXIMAB (MOAB C2B8 ANTI CD 20, CHIMERIC) [Suspect]
     Dosage: 536 MG
  3. VINCRISTINE SULFATE [Concomitant]
     Dosage: 2.4 MG
  4. CYCLOPHOSPHAMIDE [Suspect]
     Dosage: 1073 MG
  5. ETOPOSIDE [Suspect]
     Dosage: 288 MG
  6. DOXORUBICIN HCL [Suspect]
     Dosage: 56 MG

REACTIONS (8)
  - HYPONATRAEMIA [None]
  - DEHYDRATION [None]
  - CANDIDIASIS [None]
  - HYPOCALCAEMIA [None]
  - PANCYTOPENIA [None]
  - HYPOVOLAEMIA [None]
  - MUCOSAL INFLAMMATION [None]
  - HYPOKALAEMIA [None]
